FAERS Safety Report 5875056-X (Version None)
Quarter: 2008Q3

REPORT INFORMATION
  Report Type: 
  Country: None (occurrence: None)
  Receive Date: 20080908
  Receipt Date: 20080908
  Transmission Date: 20090109
  Serious: Yes (Death)
  Sender: FDA-Public Use
  Company Number: None

PATIENT
  Age: 65 Year
  Sex: Male
  Weight: 100 kg

DRUGS (9)
  1. AMIFOSTINE [Suspect]
     Indication: PROPHYLAXIS
     Dosage: 740 MG/M2 DAILY IV
     Route: 042
     Dates: start: 20050409, end: 20050415
  2. MELPHALAN [Suspect]
     Indication: CHEMOTHERAPY
     Dosage: 180 MG/M2 ONCE IV
     Route: 042
     Dates: start: 20050415
  3. LIPITOR [Concomitant]
  4. TOPROL-XL [Concomitant]
  5. VALTREX [Concomitant]
  6. LORAZEPAM [Concomitant]
  7. GLIPIZIDE [Concomitant]
  8. METFORMIN HCL [Concomitant]
  9. LISINOPRIL [Concomitant]

REACTIONS (5)
  - CARDIAC ARREST [None]
  - CATHETER SITE ERYTHEMA [None]
  - CATHETER SITE PAIN [None]
  - CEREBRAL THROMBOSIS [None]
  - FALL [None]
